FAERS Safety Report 14923247 (Version 1)
Quarter: 2018Q2

REPORT INFORMATION
  Report Type: Report from Study
  Country: None (occurrence: US)
  Receive Date: 20180522
  Receipt Date: 20180522
  Transmission Date: 20180711
  Serious: Yes (Hospitalization)
  Sender: FDA-Public Use
  Company Number: US-ABBVIE-18K-163-2361595-00

PATIENT
  Age: 58 Year
  Sex: Male

DRUGS (2)
  1. HUMIRA [Suspect]
     Active Substance: ADALIMUMAB
     Route: 058
  2. HUMIRA [Suspect]
     Active Substance: ADALIMUMAB
     Indication: RHEUMATOID ARTHRITIS
     Route: 058
     Dates: end: 2018

REACTIONS (7)
  - Tremor [Unknown]
  - Infection [Recovering/Resolving]
  - Influenza like illness [Unknown]
  - Pain in extremity [Unknown]
  - Fatigue [Unknown]
  - Nasopharyngitis [Unknown]
  - Chills [Unknown]

NARRATIVE: CASE EVENT DATE: 2018
